FAERS Safety Report 20195998 (Version 1)
Quarter: 2021Q4

REPORT INFORMATION
  Report Type: Spontaneous
  Country: CN (occurrence: CN)
  Receive Date: 20211216
  Receipt Date: 20211216
  Transmission Date: 20220303
  Serious: Yes (Hospitalization, Other)
  Sender: FDA-Public Use
  Company Number: CN-PFIZER INC-202101752206

PATIENT
  Age: 59 Year
  Sex: Female
  Weight: 51 kg

DRUGS (3)
  1. METHOTREXATE [Suspect]
     Active Substance: METHOTREXATE
     Indication: Neoplasm malignant
     Dosage: 1 G, 4X/DAY
     Route: 041
     Dates: start: 20211001, end: 20211001
  2. SODIUM CHLORIDE [Concomitant]
     Active Substance: SODIUM CHLORIDE
     Indication: Vehicle solution use
     Dosage: 500 ML, 4X/DAY
     Route: 041
     Dates: start: 20211001, end: 20211001
  3. GLUTATHIONE [Concomitant]
     Active Substance: GLUTATHIONE
     Indication: Hepatobiliary disorder prophylaxis
     Dosage: 1.8 G+NS 100ML VIA INTRAVENOUS DRIP ONCE

REACTIONS (1)
  - Liver injury [Recovered/Resolved]

NARRATIVE: CASE EVENT DATE: 20211004
